FAERS Safety Report 9669759 (Version 2)
Quarter: 2013Q4

REPORT INFORMATION
  Report Type: Spontaneous
  Country: US (occurrence: US)
  Receive Date: 20131105
  Receipt Date: 20131105
  Transmission Date: 20140711
  Serious: No
  Sender: FDA-Public Use
  Company Number: US-MYLANLABS-2013S1006883

PATIENT
  Sex: Female
  Weight: 79.83 kg

DRUGS (8)
  1. MAPROTILINE HYDROCHLORIDE TABLETS, USP [Suspect]
     Indication: DEPRESSION
     Route: 048
     Dates: start: 201301, end: 20130319
  2. SIMVASTATIN [Concomitant]
     Indication: BLOOD CHOLESTEROL INCREASED
     Route: 048
  3. ASA [Concomitant]
     Route: 048
  4. MAPROTILINE HYDROCHLORIDE TABLETS, USP [Suspect]
     Indication: DEPRESSION
     Dosage: PRN
     Route: 048
     Dates: end: 1998
  5. MAPROTILINE HYDROCHLORIDE TABLETS, USP [Suspect]
     Indication: DEPRESSION
     Dosage: PRN
     Route: 048
     Dates: start: 2012, end: 2012
  6. MAPROTILINE HYDROCHLORIDE TABLETS, USP [Suspect]
     Indication: DEPRESSION
     Dosage: PRN
     Route: 048
     Dates: start: 201301, end: 20130319
  7. MAPROTILINE HYDROCHLORIDE TABLETS, USP [Suspect]
     Indication: DEPRESSION
     Route: 048
     Dates: end: 1998
  8. MAPROTILINE HYDROCHLORIDE TABLETS, USP [Suspect]
     Indication: DEPRESSION
     Route: 048
     Dates: start: 2012, end: 2012

REACTIONS (4)
  - Malaise [Recovered/Resolved]
  - Gastrointestinal disorder [Unknown]
  - Dry mouth [Unknown]
  - Drug withdrawal syndrome [Not Recovered/Not Resolved]
